FAERS Safety Report 13062992 (Version 2)
Quarter: 2017Q1

REPORT INFORMATION
  Report Type: Spontaneous
  Country: JP (occurrence: JP)
  Receive Date: 20161227
  Receipt Date: 20170102
  Transmission Date: 20170428
  Serious: Yes (Hospitalization)
  Sender: FDA-Public Use
  Company Number: JP-ORION CORPORATION ORION PHARMA-ENT 2016-0245

PATIENT
  Age: 58 Year
  Sex: Male

DRUGS (5)
  1. COMTAN [Suspect]
     Active Substance: ENTACAPONE
     Indication: PARKINSON^S DISEASE
     Route: 048
  2. COMTAN [Suspect]
     Active Substance: ENTACAPONE
     Route: 048
  3. MENESIT [Suspect]
     Active Substance: CARBIDOPA\LEVODOPA
     Route: 048
  4. MENESIT [Suspect]
     Active Substance: CARBIDOPA\LEVODOPA
     Route: 048
  5. ETIZOLAN [Concomitant]
     Active Substance: ETIZOLAM
     Route: 065
     Dates: start: 20161201

REACTIONS (2)
  - Delusion [Recovering/Resolving]
  - Hallucination, auditory [Recovering/Resolving]

NARRATIVE: CASE EVENT DATE: 20161212
